FAERS Safety Report 15196564 (Version 3)
Quarter: 2019Q2

REPORT INFORMATION
  Report Type: Report from Study
  Country: US (occurrence: US)
  Receive Date: 20180725
  Receipt Date: 20190624
  Transmission Date: 20190711
  Serious: No
  Sender: FDA-Public Use
  Company Number: US-SA-2018SA197802

PATIENT
  Age: 61 Year
  Sex: Male

DRUGS (3)
  1. DUPILUMAB [Suspect]
     Active Substance: DUPILUMAB
     Dosage: UNK
  2. DUPILUMAB [Suspect]
     Active Substance: DUPILUMAB
     Dosage: 300 MG, QOW
     Dates: start: 2017
  3. DUPILUMAB [Suspect]
     Active Substance: DUPILUMAB
     Indication: DERMATITIS ATOPIC
     Dosage: UNK UNK, 1X

REACTIONS (7)
  - Device issue [Not Recovered/Not Resolved]
  - Conjunctivitis [Unknown]
  - Eye discharge [Unknown]
  - Therapeutic response decreased [Unknown]
  - Abnormal sensation in eye [Unknown]
  - Product dose omission [Not Recovered/Not Resolved]
  - Dermatitis [Unknown]

NARRATIVE: CASE EVENT DATE: 201806
